FAERS Safety Report 4454751-3 (Version None)
Quarter: 2004Q3

REPORT INFORMATION
  Report Type: 
  Country: None (occurrence: None)
  Receive Date: 20040920
  Receipt Date: 20040920
  Transmission Date: 20050211
  Serious: Yes (Other)
  Sender: FDA-Public Use
  Company Number: None

PATIENT
  Sex: Female

DRUGS (2)
  1. CAPTOPRIL [Suspect]
     Indication: CORONARY ARTERY DISEASE
     Dosage: 12.5 MG BID
  2. CAPTOPRIL [Suspect]
     Indication: HYPERTENSION
     Dosage: 12.5 MG BID

REACTIONS (1)
  - URTICARIA [None]
